FAERS Safety Report 16336439 (Version 2)
Quarter: 2019Q3

REPORT INFORMATION
  Report Type: Spontaneous
  Country: US (occurrence: US)
  Receive Date: 20190521
  Receipt Date: 20190730
  Transmission Date: 20191004
  Serious: Yes (Other)
  Sender: FDA-Public Use
  Company Number: US-PROCTER_AND_GAMBLE-GS19051931

PATIENT

DRUGS (2)
  1. CREST COMPLETE MULTI-BENEFIT WHITENING PLUS CINNAMON EXPRESSIONS [Suspect]
     Active Substance: SODIUM FLUORIDE
     Dosage: 1 APPLIC, 2 /DAY FOR 15 MINUTES
     Route: 002
  2. NOT A HARD TOOTHBRUSH [Concomitant]

REACTIONS (5)
  - Toothache [Unknown]
  - Tooth loss [Unknown]
  - Gingival bleeding [Unknown]
  - Gingival recession [Unknown]
  - Gingival disorder [Unknown]
